FAERS Safety Report 20719081 (Version 1)
Quarter: 2022Q2

REPORT INFORMATION
  Report Type: Spontaneous
  Country: HK (occurrence: HK)
  Receive Date: 20220418
  Receipt Date: 20220418
  Transmission Date: 20220721
  Serious: Yes (Hospitalization)
  Sender: FDA-Public Use
  Company Number: HK-MACLEODS PHARMACEUTICALS US LTD-MAC2022035254

PATIENT

DRUGS (4)
  1. OLANZAPINE [Suspect]
     Active Substance: OLANZAPINE
     Indication: Product used for unknown indication
     Dosage: 10 MILLIGRAM, QD
     Route: 065
     Dates: start: 20080919, end: 20081001
  2. HALOPERIDOL [Suspect]
     Active Substance: HALOPERIDOL
     Indication: Schizophrenia
     Dosage: 3 MILLIGRAM, QD
     Route: 065
     Dates: start: 20080715
  3. RISPERIDONE [Suspect]
     Active Substance: RISPERIDONE
     Indication: Schizophrenia
     Dosage: UNK MILLIGRAM, QD
     Route: 065
     Dates: start: 20080807
  4. RISPERIDONE [Suspect]
     Active Substance: RISPERIDONE
     Dosage: DOSAGE WAS GRADUALLY ADJUSTED TO 4 MG PER DAY
     Route: 065

REACTIONS (6)
  - Hepatosplenomegaly [Unknown]
  - Drug-induced liver injury [Unknown]
  - Jaundice cholestatic [Unknown]
  - Parkinsonism [Unknown]
  - Extrapyramidal disorder [Unknown]
  - Akathisia [Unknown]

NARRATIVE: CASE EVENT DATE: 20080807
